FAERS Safety Report 11449312 (Version 1)
Quarter: 2015Q3

REPORT INFORMATION
  Report Type: Spontaneous
  Country: JP (occurrence: JP)
  Receive Date: 20150902
  Receipt Date: 20150902
  Transmission Date: 20151125
  Serious: Yes (Other)
  Sender: FDA-Public Use
  Company Number: PHJP2015JP011663

PATIENT
  Age: 34 Year
  Sex: Female

DRUGS (40)
  1. CLOZARIL [Suspect]
     Active Substance: CLOZAPINE
     Dosage: 175 MG, QD
     Route: 048
     Dates: start: 20130113, end: 20130115
  2. CLOZARIL [Suspect]
     Active Substance: CLOZAPINE
     Dosage: 200 MG, QD
     Route: 048
     Dates: start: 20130116, end: 20130123
  3. CLOZARIL [Suspect]
     Active Substance: CLOZAPINE
     Dosage: 425 MG, QD
     Route: 048
     Dates: start: 20130529, end: 20130618
  4. CLOZARIL [Suspect]
     Active Substance: CLOZAPINE
     Dosage: 375 MG, QD
     Route: 048
     Dates: start: 20140416, end: 20140429
  5. WYPAX [Concomitant]
     Active Substance: LORAZEPAM
     Dosage: 2 MG, QD
     Route: 048
     Dates: start: 20130828, end: 20140304
  6. CLOZARIL [Suspect]
     Active Substance: CLOZAPINE
     Dosage: 125 MG, QD
     Route: 048
     Dates: start: 20130107, end: 20130109
  7. CLOZARIL [Suspect]
     Active Substance: CLOZAPINE
     Dosage: 250 MG, QD
     Route: 048
     Dates: start: 20130124, end: 20130130
  8. CLOZARIL [Suspect]
     Active Substance: CLOZAPINE
     Dosage: 500 MG, QD
     Route: 048
     Dates: start: 20130424, end: 20130514
  9. CLOZARIL [Suspect]
     Active Substance: CLOZAPINE
     Dosage: 375 MG, QD
     Route: 048
     Dates: start: 20130814, end: 20130910
  10. CLOZARIL [Suspect]
     Active Substance: CLOZAPINE
     Dosage: 400 MG, QD
     Route: 048
     Dates: start: 20140430, end: 20141210
  11. TETRAMIDE [Concomitant]
     Active Substance: MIANSERIN
     Dosage: 30 MG, QD
     Route: 048
     Dates: start: 20130328, end: 20130403
  12. WYPAX [Concomitant]
     Active Substance: LORAZEPAM
     Indication: SCHIZOPHRENIA, PARANOID TYPE
     Dosage: 1.5 MG, QD
     Route: 048
     Dates: start: 20130508, end: 20130611
  13. WYPAX [Concomitant]
     Active Substance: LORAZEPAM
     Dosage: 3 MG, QD
     Route: 048
     Dates: start: 20130508, end: 20130611
  14. CLOZARIL [Suspect]
     Active Substance: CLOZAPINE
     Dosage: 450 MG, QD
     Route: 048
     Dates: start: 20130221, end: 20130227
  15. CLOZARIL [Suspect]
     Active Substance: CLOZAPINE
     Dosage: 375 MG, QD
     Route: 048
     Dates: start: 20141211
  16. WYPAX [Concomitant]
     Active Substance: LORAZEPAM
     Dosage: 3 MG, QD
     Route: 048
     Dates: start: 20130717, end: 20130827
  17. CLOZARIL [Suspect]
     Active Substance: CLOZAPINE
     Dosage: 75 MG, QD
     Route: 048
     Dates: start: 20130103, end: 20130104
  18. CLOZARIL [Suspect]
     Active Substance: CLOZAPINE
     Dosage: 350 MG, QD
     Route: 048
     Dates: start: 20130207, end: 20130213
  19. CLOZARIL [Suspect]
     Active Substance: CLOZAPINE
     Dosage: 400 MG, QD
     Route: 048
     Dates: start: 20130214, end: 20130220
  20. CLOZARIL [Suspect]
     Active Substance: CLOZAPINE
     Dosage: 550 MG, QD
     Route: 048
     Dates: start: 20130307, end: 20130423
  21. WYPAX [Concomitant]
     Active Substance: LORAZEPAM
     Dosage: 2 MG, QD
     Route: 048
     Dates: start: 20140529, end: 20141227
  22. PYDOXAL [Concomitant]
     Active Substance: PYRIDOXAL
     Indication: ACNE
     Dosage: 60 MG, QD
     Route: 048
     Dates: start: 20130206, end: 20130226
  23. CLOZARIL [Suspect]
     Active Substance: CLOZAPINE
     Dosage: 100 MG, QD
     Route: 048
     Dates: start: 20130105, end: 20130106
  24. CLOZARIL [Suspect]
     Active Substance: CLOZAPINE
     Dosage: 450 MG, QD
     Route: 048
     Dates: start: 20130522, end: 20130528
  25. CLOZARIL [Suspect]
     Active Substance: CLOZAPINE
     Dosage: 400 MG, QD
     Route: 048
     Dates: start: 20130911, end: 20140415
  26. BENZALIN [Concomitant]
     Active Substance: NITRAZEPAM
     Indication: SCHIZOPHRENIA, PARANOID TYPE
     Dosage: 5 MG, QD
     Route: 048
     Dates: start: 20121227, end: 20130204
  27. BENZALIN [Concomitant]
     Active Substance: NITRAZEPAM
     Dosage: 10 MG, QD
     Route: 048
     Dates: start: 20130205, end: 20140304
  28. WYPAX [Concomitant]
     Active Substance: LORAZEPAM
     Dosage: 1 MG, QD
     Route: 048
     Dates: start: 20140305, end: 20140528
  29. COMMON COLD [Concomitant]
     Indication: NASOPHARYNGITIS
     Dosage: 3 G, QD
     Route: 048
     Dates: start: 20130105, end: 20130108
  30. CLOZARIL [Suspect]
     Active Substance: CLOZAPINE
     Indication: SCHIZOPHRENIA
     Dosage: 12.5 MG, QD
     Route: 048
     Dates: start: 20121227, end: 20121227
  31. CLOZARIL [Suspect]
     Active Substance: CLOZAPINE
     Dosage: 50 MG, QD
     Route: 048
     Dates: start: 20121231, end: 20130102
  32. CLOZARIL [Suspect]
     Active Substance: CLOZAPINE
     Dosage: 150 MG, QD
     Route: 048
     Dates: start: 20130110, end: 20130112
  33. CLOZARIL [Suspect]
     Active Substance: CLOZAPINE
     Dosage: 300 MG, QD
     Route: 048
     Dates: start: 20130131, end: 20130206
  34. CLOZARIL [Suspect]
     Active Substance: CLOZAPINE
     Dosage: 500 MG, QD
     Route: 048
     Dates: start: 20130228, end: 20130306
  35. CLOZARIL [Suspect]
     Active Substance: CLOZAPINE
     Dosage: 350 MG, QD
     Route: 048
     Dates: start: 20130731, end: 20130813
  36. CLOZARIL [Suspect]
     Active Substance: CLOZAPINE
     Dosage: 25 MG, QD
     Route: 048
     Dates: start: 20121228, end: 20121230
  37. CLOZARIL [Suspect]
     Active Substance: CLOZAPINE
     Dosage: 475 MG, QD
     Route: 048
     Dates: start: 20130515, end: 20130521
  38. CLOZARIL [Suspect]
     Active Substance: CLOZAPINE
     Dosage: 400 MG, QD
     Route: 048
     Dates: start: 20130619, end: 20130730
  39. TETRAMIDE [Concomitant]
     Active Substance: MIANSERIN
     Indication: SCHIZOPHRENIA, PARANOID TYPE
     Dosage: 60 MG, QD
     Route: 048
     Dates: start: 20121227, end: 20130327
  40. FLAVITAN [Concomitant]
     Active Substance: FLAVIN ADENINE DINUCLEOTIDE
     Indication: ACNE
     Dosage: 20 MG, QD
     Route: 048
     Dates: start: 20130206, end: 20130226

REACTIONS (1)
  - Neoplasm malignant [Unknown]
